FAERS Safety Report 4620022-5 (Version None)
Quarter: 2005Q1

REPORT INFORMATION
  Report Type: 
  Country: None (occurrence: None)
  Receive Date: 20050321
  Receipt Date: 20050321
  Transmission Date: 20050727
  Serious: No
  Sender: FDA-Public Use
  Company Number: None

PATIENT
  Sex: Male
  Weight: 64 kg

DRUGS (7)
  1. CELECOXIB [Suspect]
     Dosage: 400 MG BID
     Dates: start: 20050114
  2. RT [Concomitant]
  3. HYDROMOREPH [Concomitant]
  4. CONTIN [Concomitant]
  5. DILAUDID [Concomitant]
  6. COLACE [Concomitant]
  7. DULCOLAX [Concomitant]

REACTIONS (5)
  - COGNITIVE DISORDER [None]
  - DELIRIUM [None]
  - OVERDOSE [None]
  - PAIN [None]
  - TREATMENT NONCOMPLIANCE [None]
